FAERS Safety Report 23150106 (Version 2)
Quarter: 2024Q2

REPORT INFORMATION
  Report Type: Spontaneous
  Country: DK (occurrence: DK)
  Receive Date: 20231106
  Receipt Date: 20240510
  Transmission Date: 20240716
  Serious: Yes (Other)
  Sender: FDA-Public Use
  Company Number: DK-UCBSA-2023050106

PATIENT
  Age: 16 Year
  Sex: Female

DRUGS (10)
  1. LEVETIRACETAM [Suspect]
     Active Substance: LEVETIRACETAM
     Indication: Generalised tonic-clonic seizure
     Dosage: UNK, INITIAL DOSE
     Route: 065
  2. LEVETIRACETAM [Suspect]
     Active Substance: LEVETIRACETAM
     Dosage: 2000 MG, QD,GRADUALLY INCREASED
     Route: 065
  3. ESLICARBAZEPINE [Suspect]
     Active Substance: ESLICARBAZEPINE
     Indication: Petit mal epilepsy
     Dosage: 800 MILLIGRAM PER DAY
     Route: 065
  4. CREATINE [Suspect]
     Active Substance: CREATINE
     Indication: Supplementation therapy
     Dosage: 400 MG/KG/DAY, Q6H
     Route: 065
  5. ARGININE [Suspect]
     Active Substance: ARGININE
     Indication: Supplementation therapy
     Dosage: 400 MG/KG/DAY, Q6H
     Route: 065
  6. BRIVARACETAM [Suspect]
     Active Substance: BRIVARACETAM
     Indication: Petit mal epilepsy
     Dosage: 200 MILLIGRAM PER DAY
     Route: 065
  7. BRIVARACETAM [Suspect]
     Active Substance: BRIVARACETAM
     Dosage: 225 MILLIGRAM, QD
     Route: 065
  8. GLYCINE [Suspect]
     Active Substance: GLYCINE
     Indication: Supplementation therapy
     Dosage: 150 MG/KG/DAY, Q6H
     Route: 065
  9. LAMOTRIGINE [Concomitant]
     Active Substance: LAMOTRIGINE
     Indication: Generalised tonic-clonic seizure
     Dosage: 5 MILLIGRAM/KILOGRAM, QD
     Route: 065
  10. LAMOTRIGINE [Concomitant]
     Active Substance: LAMOTRIGINE
     Dosage: 10 MILLIGRAM/KILOGRAM, QD
     Route: 065

REACTIONS (5)
  - Seizure [Unknown]
  - Petit mal epilepsy [Unknown]
  - Automatism [Unknown]
  - Off label use [Unknown]
  - Drug ineffective for unapproved indication [Unknown]
